FAERS Safety Report 9486483 (Version 3)
Quarter: 2014Q1

REPORT INFORMATION
  Report Type: Spontaneous
  Country: US (occurrence: None)
  Receive Date: 20130827
  Receipt Date: 20140228
  Transmission Date: 20141002
  Serious: Yes (Death, Hospitalization)
  Sender: FDA-Public Use
  Company Number: US-000764

PATIENT
  Age: 27 Year
  Sex: Male

DRUGS (6)
  1. GATTEX [Suspect]
     Indication: SHORT-BOWEL SYNDROME
     Route: 058
     Dates: start: 20130718
  2. SOLUTION FOR PARENTERAL NUTRITION [Concomitant]
  3. REMERON [Concomitant]
  4. HEROIN [Concomitant]
  5. DILAUDID [Concomitant]
  6. ANALGESICS [Concomitant]

REACTIONS (4)
  - Chills [None]
  - Asthenia [None]
  - Cardiac arrest [None]
  - Device related infection [None]
